FAERS Safety Report 25902988 (Version 1)
Quarter: 2025Q4

REPORT INFORMATION
  Report Type: Spontaneous
  Country: US (occurrence: None)
  Receive Date: 20251009
  Receipt Date: 20251009
  Transmission Date: 20260118
  Serious: Yes (Hospitalization)
  Sender: FDA-CTU
  Company Number: None

PATIENT
  Age: 22 Year
  Sex: Female
  Weight: 54 kg

DRUGS (2)
  1. ESCITALOPRAM [Suspect]
     Active Substance: ESCITALOPRAM OXALATE
     Indication: Anxiety
     Dosage: OTHER QUANTITY : 1 TABLET(S);?FREQUENCY : DAILY;?
     Route: 048
     Dates: start: 20250807, end: 20250808
  2. UNSPECIFIED INGREDIENT [Concomitant]
     Active Substance: UNSPECIFIED INGREDIENT

REACTIONS (33)
  - Feeling abnormal [None]
  - Paraesthesia [None]
  - Muscle spasms [None]
  - Dyskinesia [None]
  - Muscle twitching [None]
  - Nausea [None]
  - Dizziness [None]
  - Chest pain [None]
  - Heart rate abnormal [None]
  - Nonspecific reaction [None]
  - Visual impairment [None]
  - Photophobia [None]
  - Hyperacusis [None]
  - Jaw disorder [None]
  - Anhedonia [None]
  - Depersonalisation/derealisation disorder [None]
  - Flat affect [None]
  - Decreased interest [None]
  - Altered state of consciousness [None]
  - Restlessness [None]
  - Agitation [None]
  - Social problem [None]
  - Thirst decreased [None]
  - Decreased appetite [None]
  - Insomnia [None]
  - Agitation [None]
  - Hypoaesthesia [None]
  - Emotional poverty [None]
  - Memory impairment [None]
  - Dementia [None]
  - Staring [None]
  - Time perception altered [None]
  - Cognitive disorder [None]

NARRATIVE: CASE EVENT DATE: 20250808
